FAERS Safety Report 15777270 (Version 1)
Quarter: 2018Q4

REPORT INFORMATION
  Report Type: Spontaneous
  Country: US (occurrence: US)
  Receive Date: 20181212
  Receipt Date: 20181212
  Transmission Date: 20190205
  Serious: No
  Sender: FDA-Public Use
  Company Number: None

PATIENT
  Age: 52 Year
  Sex: Female
  Weight: 73.94 kg

DRUGS (2)
  1. BENLYSTA [Suspect]
     Active Substance: BELIMUMAB
     Indication: RHEUMATOID ARTHRITIS
     Dosage: OTHER DOSE:742.73MG; EVERY 28 DAYS AS DIRECTED?
     Route: 042
     Dates: start: 201601
  2. BENLYSTA [Suspect]
     Active Substance: BELIMUMAB
     Indication: SYSTEMIC LUPUS ERYTHEMATOSUS
     Dosage: OTHER DOSE:742.73MG; EVERY 28 DAYS AS DIRECTED?
     Route: 042
     Dates: start: 201601

REACTIONS (1)
  - Pneumonia [None]
